FAERS Safety Report 5090109-4 (Version None)
Quarter: 2006Q3

REPORT INFORMATION
  Report Type: 
  Country: None (occurrence: None)
  Receive Date: 20060823
  Receipt Date: 20060810
  Transmission Date: 20061208
  Serious: Yes (Life-Threatening, Hospitalization, Other)
  Sender: FDA-Public Use
  Company Number: 2006097680

PATIENT
  Age: 48 Year
  Sex: Female
  Weight: 61.2356 kg

DRUGS (2)
  1. GEODON [Suspect]
     Indication: DEPRESSION
     Dates: start: 20060701
  2. ALL OTHER THERAPEUTIC PRODUCTS (ALL OTHER THERAPEUTIC PRODUCTS) [Concomitant]

REACTIONS (2)
  - HALLUCINATION [None]
  - PARALYSIS [None]
